FAERS Safety Report 19972383 (Version 1)
Quarter: 2021Q4

REPORT INFORMATION
  Report Type: Spontaneous
  Country: EG (occurrence: EG)
  Receive Date: 20211020
  Receipt Date: 20211020
  Transmission Date: 20220303
  Serious: Yes (Hospitalization, Other)
  Sender: FDA-Public Use
  Company Number: EG-NOVARTISPH-NVSC2021EG236335

PATIENT
  Age: 45 Year
  Sex: Male

DRUGS (5)
  1. COSENTYX [Suspect]
     Active Substance: SECUKINUMAB
     Indication: Psoriasis
     Dosage: 300 MG, QMO (150MG 2 PENS PER MONTH FOR THREE MONTHS THEN COSENTYX 150MG ONE PEN PER MONTH)
     Route: 058
     Dates: start: 2019, end: 202107
  2. COSENTYX [Suspect]
     Active Substance: SECUKINUMAB
     Dosage: 150 DF, QMO
     Route: 058
     Dates: start: 20211011
  3. LANTUS [Concomitant]
     Active Substance: INSULIN GLARGINE
     Indication: Diabetes mellitus
     Dosage: 35 IU, QD (STARTED THREE MONTHS AGO, AT NIGHT DAILY)
     Route: 065
  4. GASTROBIOTIC [Concomitant]
     Indication: Abdominal discomfort
     Dosage: UNK, BID
     Route: 065
  5. APIDRA [Concomitant]
     Active Substance: INSULIN GLULISINE
     Indication: Diabetes mellitus
     Dosage: 20 IU, TID (BEFOR MEALS)
     Route: 065

REACTIONS (11)
  - Coma hepatic [Recovered/Resolved]
  - Hepatic vein thrombosis [Not Recovered/Not Resolved]
  - Ascites [Not Recovered/Not Resolved]
  - Liver disorder [Not Recovered/Not Resolved]
  - Rebound psoriasis [Not Recovered/Not Resolved]
  - Skin haemorrhage [Not Recovered/Not Resolved]
  - Pain [Not Recovered/Not Resolved]
  - Insomnia [Not Recovered/Not Resolved]
  - Anaemia [Unknown]
  - Blood glucose increased [Recovering/Resolving]
  - Product use issue [Recovered/Resolved]

NARRATIVE: CASE EVENT DATE: 20190101
